FAERS Safety Report 23670057 (Version 3)
Quarter: 2024Q2

REPORT INFORMATION
  Report Type: Spontaneous
  Country: CA (occurrence: CA)
  Receive Date: 20240325
  Receipt Date: 20240408
  Transmission Date: 20240716
  Serious: Yes (Hospitalization)
  Sender: FDA-Public Use
  Company Number: CA-BIOMARINAP-CA-2024-156263

PATIENT

DRUGS (11)
  1. VIMIZIM [Suspect]
     Active Substance: ELOSULFASE ALFA
     Indication: Mucopolysaccharidosis IV
     Dosage: 2 MILLIGRAM/KILOGRAM, QW
     Route: 042
     Dates: start: 20110930
  2. VIMIZIM [Suspect]
     Active Substance: ELOSULFASE ALFA
     Dosage: 55 MILLIGRAM, QW
     Route: 042
  3. LORATADINE [Concomitant]
     Active Substance: LORATADINE
     Indication: Premedication
     Dosage: 10 MILLIGRAM
  4. DIPHENHYDRAMINE [Concomitant]
     Active Substance: DIPHENHYDRAMINE
     Indication: Premedication
     Dosage: 25 MILLIGRAM
  5. BENADRYL [Concomitant]
     Active Substance: DIPHENHYDRAMINE HYDROCHLORIDE
     Indication: Premedication
     Dosage: 25 MILLIGRAM
     Route: 048
  6. IBUPROFEN [Concomitant]
     Active Substance: IBUPROFEN
     Indication: Premedication
     Dosage: 200 MILLIGRAM, SINGLE
     Route: 048
  7. CLARITIN [Concomitant]
     Active Substance: LORATADINE
     Indication: Premedication
     Dosage: 10 MILLIGRAM, SINGLE
     Route: 060
  8. CLARITIN [Concomitant]
     Active Substance: LORATADINE
     Indication: Seasonal allergy
  9. SINGULAIR [Concomitant]
     Active Substance: MONTELUKAST SODIUM
     Indication: Premedication
     Dosage: 10 MILLIGRAM, SINGLE
     Route: 048
  10. FLOVENT [Concomitant]
     Active Substance: FLUTICASONE PROPIONATE
     Indication: Premedication
     Dosage: UNK, QD
  11. VENTOLIN [Concomitant]
     Active Substance: ALBUTEROL SULFATE
     Indication: Premedication
     Dosage: UNK, QD

REACTIONS (13)
  - Device related infection [Recovered/Resolved]
  - Nasopharyngitis [Recovered/Resolved]
  - Fatigue [Recovered/Resolved]
  - Body temperature increased [Recovered/Resolved]
  - Blood glucose increased [Unknown]
  - Heart rate increased [Recovered/Resolved]
  - Injection site infection [Recovered/Resolved]
  - Body temperature fluctuation [Unknown]
  - Feeling cold [Recovered/Resolved]
  - Pyrexia [Unknown]
  - Malaise [Recovered/Resolved]
  - Pain [Unknown]
  - Airway compression [Unknown]

NARRATIVE: CASE EVENT DATE: 20040302
